FAERS Safety Report 9450838 (Version 1)
Quarter: 2013Q3

REPORT INFORMATION
  Report Type: Report from Study
  Country: US (occurrence: US)
  Receive Date: 20130809
  Receipt Date: 20130809
  Transmission Date: 20140515
  Serious: Yes (Death, Hospitalization)
  Sender: FDA-Public Use
  Company Number: US-PFIZER INC-2013230361

PATIENT
  Sex: 0

DRUGS (4)
  1. FLUOROURACIL [Suspect]
     Indication: HEAD AND NECK CANCER
     Dosage: 1000 MG/M2/DAY ON DAY ONE OF AN EVERY 21-DAY SCHEDULE
     Route: 042
  2. OXALIPLATIN [Suspect]
     Indication: HEAD AND NECK CANCER METASTATIC
     Dosage: 130 MG/M2 DAY 1 OF A 21-DAY CYCLE
     Route: 042
  3. CETUXIMAB [Suspect]
     Indication: HEAD AND NECK CANCER
     Dosage: 400 MG/M2, OVER 2H ON DAY 1 OF A 21-DAY CYCLE
     Route: 042
  4. CETUXIMAB [Suspect]
     Dosage: 250 MG/M2 OVER 1H WEEKLY, EVERY 21 DAYS
     Route: 042

REACTIONS (6)
  - Hypernatraemia [Fatal]
  - Renal failure acute [Unknown]
  - Hypokalaemia [Unknown]
  - Diarrhoea [Unknown]
  - Upper gastrointestinal haemorrhage [Unknown]
  - Dehydration [Unknown]
